FAERS Safety Report 25401182 (Version 1)
Quarter: 2025Q2

REPORT INFORMATION
  Report Type: Spontaneous
  Country: GB (occurrence: GB)
  Receive Date: 20250605
  Receipt Date: 20250605
  Transmission Date: 20250716
  Serious: Yes (Other)
  Sender: ELI LILLY AND COMPANY
  Company Number: None

PATIENT
  Age: 65 Year
  Sex: Female

DRUGS (3)
  1. MOUNJARO [Suspect]
     Active Substance: TIRZEPATIDE
     Indication: Diabetes mellitus
     Route: 065
  2. MOUNJARO [Suspect]
     Active Substance: TIRZEPATIDE
     Route: 065
     Dates: start: 20250521
  3. HUMULIN N [Concomitant]
     Active Substance: INSULIN HUMAN
     Indication: Diabetes mellitus

REACTIONS (2)
  - Gastritis [Not Recovered/Not Resolved]
  - Irritable bowel syndrome [Unknown]
